FAERS Safety Report 16675067 (Version 2)
Quarter: 2019Q3

REPORT INFORMATION
  Report Type: Report from Study
  Country: AU (occurrence: AU)
  Receive Date: 20190806
  Receipt Date: 20190807
  Transmission Date: 20191004
  Serious: Yes (Hospitalization)
  Sender: FDA-Public Use
  Company Number: AU-EISAI MEDICAL RESEARCH-EC-2019-060166

PATIENT
  Age: 58 Year
  Sex: Male

DRUGS (8)
  1. LENVATINIB [Suspect]
     Active Substance: LENVATINIB
     Indication: NON-SMALL CELL LUNG CANCER
     Dosage: STARTING DOSE AT 20 MG, FLUCTUATED DOSAGE.
     Route: 048
     Dates: start: 20190123, end: 20190618
  2. LENVATINIB [Suspect]
     Active Substance: LENVATINIB
     Route: 048
     Dates: start: 20190619, end: 20190626
  3. MOBIC [Concomitant]
     Active Substance: MELOXICAM
     Dates: start: 199301
  4. PRISTIQ EXTENDED-RELEASE [Concomitant]
     Active Substance: DESVENLAFAXINE SUCCINATE
     Dates: start: 199301
  5. GASTROSTOP [Concomitant]
     Dates: start: 20190626, end: 20190708
  6. PEMBROLIZUMAB. [Suspect]
     Active Substance: PEMBROLIZUMAB
     Indication: NON-SMALL CELL LUNG CANCER
     Route: 041
     Dates: start: 20190123, end: 20190619
  7. PEMBROLIZUMAB. [Suspect]
     Active Substance: PEMBROLIZUMAB
     Route: 041
     Dates: start: 20190710, end: 20190710
  8. MAXIGESIC [Concomitant]
     Dates: start: 20190327

REACTIONS (1)
  - Diarrhoea [Not Recovered/Not Resolved]

NARRATIVE: CASE EVENT DATE: 20190710
